FAERS Safety Report 18428132 (Version 1)
Quarter: 2020Q4

REPORT INFORMATION
  Report Type: Report from Study
  Country: US (occurrence: US)
  Receive Date: 20201026
  Receipt Date: 20201026
  Transmission Date: 20210114
  Serious: Yes (Death)
  Sender: FDA-Public Use
  Company Number: US-ASTRAZENECA-2020SF37117

PATIENT
  Sex: Male
  Weight: 108.9 kg

DRUGS (12)
  1. LASIX [Concomitant]
     Active Substance: FUROSEMIDE
  2. CARTIA XT [Concomitant]
     Active Substance: DILTIAZEM HYDROCHLORIDE
  3. PRAVASTATIN. [Concomitant]
     Active Substance: PRAVASTATIN
  4. METOPROLAL TARTRATE [Suspect]
     Active Substance: METOPROLOL TARTRATE
     Route: 065
  5. MONTELUKAST [Concomitant]
     Active Substance: MONTELUKAST SODIUM
  6. FINASTERIDE. [Concomitant]
     Active Substance: FINASTERIDE
  7. EZETIMIDE [Concomitant]
  8. FASENRA [Suspect]
     Active Substance: BENRALIZUMAB
     Indication: ASTHMA
     Dosage: 30MG/ML EVERY EIGHT WEEKS
     Route: 058
  9. XARELTO [Concomitant]
     Active Substance: RIVAROXABAN
  10. TAMULOSIN [Concomitant]
     Active Substance: TAMSULOSIN
  11. POTASSIUM [Concomitant]
     Active Substance: POTASSIUM
  12. ASPRIN [Concomitant]
     Active Substance: ASPIRIN

REACTIONS (1)
  - Death [Fatal]
